FAERS Safety Report 5447511-8 (Version None)
Quarter: 2007Q3

REPORT INFORMATION
  Report Type: 
  Country: None (occurrence: None)
  Receive Date: 20070910
  Receipt Date: 20070830
  Transmission Date: 20080115
  Serious: Yes (Death, Hospitalization)
  Sender: FDA-Public Use
  Company Number: B0485413B

PATIENT
  Sex: Female
  Weight: 3 kg

DRUGS (6)
  1. COMBIVIR [Suspect]
     Indication: HIV INFECTION
     Dates: start: 20061013, end: 20070704
  2. KALETRA [Suspect]
     Indication: HIV INFECTION
     Dates: start: 20061109, end: 20070704
  3. RETROVIR [Concomitant]
     Indication: ANTIVIRAL PROPHYLAXIS
     Route: 065
     Dates: start: 20070704, end: 20070701
  4. BACTRIM [Concomitant]
     Dates: end: 20061109
  5. LOCAL ANESTHESIA [Concomitant]
     Dates: start: 20070404, end: 20070404
  6. SUSTIVA [Concomitant]
     Indication: HIV INFECTION
     Dates: end: 20061109

REACTIONS (40)
  - AGITATION [None]
  - ALANINE AMINOTRANSFERASE INCREASED [None]
  - ANOXIA [None]
  - ASPARTATE AMINOTRANSFERASE INCREASED [None]
  - BLADDER DISTENSION [None]
  - BLOOD ALKALINE PHOSPHATASE INCREASED [None]
  - BODY TEMPERATURE DECREASED [None]
  - BRADYCARDIA [None]
  - BRAIN OEDEMA [None]
  - C-REACTIVE PROTEIN INCREASED [None]
  - CARDIAC DISORDER [None]
  - CARDIAC HYPERTROPHY [None]
  - CEREBRAL ISCHAEMIA [None]
  - COMA [None]
  - DILATATION VENTRICULAR [None]
  - DISTURBANCE IN ATTENTION [None]
  - DRUG EXPOSURE DURING PREGNANCY [None]
  - ENCEPHALOPATHY [None]
  - FOETAL HEART RATE DISORDER [None]
  - GAMMA-GLUTAMYLTRANSFERASE INCREASED [None]
  - HAEMATOCRIT DECREASED [None]
  - HYPERLACTACIDAEMIA [None]
  - HYPERTONIA [None]
  - HYPONATRAEMIA [None]
  - HYPOREFLEXIA [None]
  - HYPOTONIA [None]
  - INFECTION [None]
  - ISCHAEMIA [None]
  - LIVER DISORDER [None]
  - MASTICATION DISORDER [None]
  - MECONIUM IN AMNIOTIC FLUID [None]
  - MITOCHONDRIAL CYTOPATHY [None]
  - MYOCARDIAL ISCHAEMIA [None]
  - POLYURIA [None]
  - POOR SUCKING REFLEX [None]
  - PULMONARY HYPERTENSION [None]
  - RESPIRATORY DISTRESS [None]
  - RIGHT VENTRICULAR HYPERTROPHY [None]
  - STATUS EPILEPTICUS [None]
  - THROMBOCYTOPENIA [None]
